FAERS Safety Report 23896048 (Version 1)
Quarter: 2024Q2

REPORT INFORMATION
  Report Type: Spontaneous
  Country: CA (occurrence: CA)
  Receive Date: 20240524
  Receipt Date: 20240524
  Transmission Date: 20240716
  Serious: Yes (Other)
  Sender: FDA-Public Use
  Company Number: CA-PFIZER INC-202400175005

PATIENT
  Age: 47 Year
  Sex: Female

DRUGS (5)
  1. RITUXIMAB [Suspect]
     Active Substance: RITUXIMAB
     Indication: Hodgkin^s disease
     Route: 065
  2. BENDAMUSTINE HYDROCHLORIDE [Suspect]
     Active Substance: BENDAMUSTINE HYDROCHLORIDE
     Indication: Hodgkin^s disease
     Route: 065
  3. OBINUTUZUMAB [Suspect]
     Active Substance: OBINUTUZUMAB
     Indication: Hodgkin^s disease
     Route: 042
  4. POLATUZUMAB VEDOTIN [Suspect]
     Active Substance: POLATUZUMAB VEDOTIN
     Indication: Hodgkin^s disease
     Route: 065
  5. GLOFITAMAB [Suspect]
     Active Substance: GLOFITAMAB
     Indication: Hodgkin^s disease
     Route: 065

REACTIONS (3)
  - Second primary malignancy [Unknown]
  - B-cell lymphoma [Unknown]
  - Off label use [Unknown]
